FAERS Safety Report 9800851 (Version 1)
Quarter: 2014Q1

REPORT INFORMATION
  Report Type: Other
  Country: GB (occurrence: GB)
  Receive Date: 20140107
  Receipt Date: 20140107
  Transmission Date: 20141002
  Serious: Yes (Death)
  Sender: FDA-Public Use
  Company Number: GB-TARO PHARMACEUTICALS U.S.A., INC-2013SUN05331

PATIENT
  Age: 78 Year
  Sex: Male
  Weight: 56 kg

DRUGS (1)
  1. WARFARIN [Suspect]
     Indication: VENOUS THROMBOSIS LIMB
     Dosage: 6 MG, OD
     Route: 048
     Dates: start: 20130710, end: 20131023

REACTIONS (1)
  - Aortic aneurysm rupture [Fatal]
